FAERS Safety Report 12914500 (Version 2)
Quarter: 2017Q1

REPORT INFORMATION
  Report Type: Spontaneous
  Country: US (occurrence: US)
  Receive Date: 20161106
  Receipt Date: 20170216
  Transmission Date: 20170428
  Serious: No
  Sender: FDA-Public Use
  Company Number: US-RELYPSA-RLY2016001619

PATIENT
  Age: 72 Year
  Sex: Female

DRUGS (12)
  1. VELTASSA [Suspect]
     Active Substance: PATIROMER
     Dosage: 8.4 G, 3 TIMES WEEKLY
     Route: 048
     Dates: start: 201607, end: 201608
  2. VELTASSA [Suspect]
     Active Substance: PATIROMER
     Indication: HYPERKALAEMIA
     Dosage: 8.4 G, QD
     Route: 048
     Dates: start: 201606, end: 201607
  3. VELTASSA [Suspect]
     Active Substance: PATIROMER
     Dosage: 8.4 G, 3 TIMES WEEKLY
     Route: 048
     Dates: start: 2016, end: 201611
  4. CALCIUM + VITAMIN D                /00944201/ [Concomitant]
     Active Substance: CALCIUM CARBONATE\CHOLECALCIFEROL
  5. FLUTICASONE PROPIONATE. [Concomitant]
     Active Substance: FLUTICASONE PROPIONATE
  6. LIPITOR [Concomitant]
     Active Substance: ATORVASTATIN CALCIUM
  7. VELTASSA [Suspect]
     Active Substance: PATIROMER
     Dosage: 8.4 G, FIVE DAYS A WEEK
     Route: 048
     Dates: start: 201608, end: 2016
  8. VELTASSA [Suspect]
     Active Substance: PATIROMER
     Dosage: 8.4 G, 5 TIMES WEEKLY
     Route: 048
     Dates: start: 201611
  9. ZEBETA [Concomitant]
     Active Substance: BISOPROLOL FUMARATE
  10. HYZAAR [Concomitant]
     Active Substance: HYDROCHLOROTHIAZIDE\LOSARTAN POTASSIUM
  11. CENTRUM SILVER ADULTS 50+ [Concomitant]
     Active Substance: MINERALS\VITAMINS
  12. VAGIFEM [Concomitant]
     Active Substance: ESTRADIOL

REACTIONS (3)
  - Blood potassium increased [Unknown]
  - Inappropriate schedule of drug administration [Unknown]
  - Peripheral swelling [Recovering/Resolving]

NARRATIVE: CASE EVENT DATE: 201607
